FAERS Safety Report 21303482 (Version 2)
Quarter: 2022Q3

REPORT INFORMATION
  Report Type: Spontaneous
  Country: US (occurrence: US)
  Receive Date: 20220907
  Receipt Date: 20220929
  Transmission Date: 20221026
  Serious: Yes (Other)
  Sender: FDA-Public Use
  Company Number: US-PFIZER INC-202201126742

PATIENT
  Age: 78 Year
  Sex: Male
  Weight: 63.492 kg

DRUGS (5)
  1. PAXLOVID [Suspect]
     Active Substance: NIRMATRELVIR\RITONAVIR
     Indication: COVID-19 treatment
     Dosage: 3 DF, 2X/DAY
     Dates: start: 20220823, end: 20220827
  2. RANOLAZINE [Suspect]
     Active Substance: RANOLAZINE
     Dosage: UNK
     Dates: start: 20220201, end: 20220824
  3. RANOLAZINE [Suspect]
     Active Substance: RANOLAZINE
     Dosage: UNK
  4. ROSUVASTATIN [Concomitant]
     Active Substance: ROSUVASTATIN
     Dosage: UNK
     Dates: start: 20100101, end: 20220824
  5. ROSUVASTATIN [Concomitant]
     Active Substance: ROSUVASTATIN
     Dosage: UNK

REACTIONS (7)
  - Syncope [Recovered/Resolved]
  - Dehydration [Unknown]
  - Contraindicated product administered [Unknown]
  - Sneezing [Recovered/Resolved]
  - Pyrexia [Recovered/Resolved]
  - Cough [Recovered/Resolved]
  - Rhinorrhoea [Recovered/Resolved]

NARRATIVE: CASE EVENT DATE: 20220829
